FAERS Safety Report 10587797 (Version 1)
Quarter: 2014Q4

REPORT INFORMATION
  Report Type: Report from Study
  Country: SA (occurrence: SA)
  Receive Date: 20141117
  Receipt Date: 20141117
  Transmission Date: 20150529
  Serious: Yes (Death)
  Sender: FDA-Public Use
  Company Number: SA-BAXTER-2014BAX068369

PATIENT

DRUGS (5)
  1. VINCRISTINE [Suspect]
     Active Substance: VINCRISTINE
     Indication: MEDULLOBLASTOMA
     Dosage: ON DAYS 1, 8, 15 FOR EACH 4 WEEK CYCLE
     Route: 065
  2. ISOTRETINOIN [Suspect]
     Active Substance: ISOTRETINOIN
     Indication: MEDULLOBLASTOMA
     Dosage: DAY 1-14
     Route: 065
  3. ENDOXAN VIALS [Suspect]
     Active Substance: CYCLOPHOSPHAMIDE
     Indication: MEDULLOBLASTOMA
     Dosage: 1.5 G/M2 ON DAYS 1-2
     Route: 065
  4. ETOPOSIDE. [Suspect]
     Active Substance: ETOPOSIDE
     Indication: MEDULLOBLASTOMA
     Dosage: ON DAYS 1-21 OF A 4 WEEK CYCLE, SIX CYCLES
     Route: 048
  5. CISPLATIN. [Suspect]
     Active Substance: CISPLATIN
     Indication: MEDULLOBLASTOMA
     Dosage: ON DAY 1, SIX CYCLES
     Route: 065

REACTIONS (1)
  - Death [Fatal]
